FAERS Safety Report 19328749 (Version 1)
Quarter: 2021Q2

REPORT INFORMATION
  Report Type: Spontaneous
  Country: US (occurrence: US)
  Receive Date: 20210528
  Receipt Date: 20210528
  Transmission Date: 20210717
  Serious: No
  Sender: FDA-Public Use
  Company Number: US-GLAXOSMITHKLINE-US2021105848

PATIENT
  Sex: Female

DRUGS (1)
  1. FLOVENT [Suspect]
     Active Substance: FLUTICASONE PROPIONATE
     Indication: PRODUCT USED FOR UNKNOWN INDICATION
     Dosage: 1 DF, QD
     Dates: start: 20210510

REACTIONS (3)
  - Device monitoring procedure not performed [Unknown]
  - Wrong technique in product usage process [Recovered/Resolved]
  - Underdose [Unknown]
